FAERS Safety Report 22312566 (Version 1)
Quarter: 2023Q2

REPORT INFORMATION
  Report Type: Spontaneous
  Country: US (occurrence: US)
  Receive Date: 20230512
  Receipt Date: 20230512
  Transmission Date: 20230721
  Serious: Yes (Other)
  Sender: FDA-Public Use
  Company Number: US-BAUSCHBL-2023BNL003878

PATIENT
  Age: 85 Year
  Sex: Female
  Weight: 78.542 kg

DRUGS (2)
  1. MURO 128 [Suspect]
     Active Substance: SODIUM CHLORIDE
     Indication: Fuchs^ syndrome
     Route: 047
     Dates: start: 20221101
  2. MURO 128 [Suspect]
     Active Substance: SODIUM CHLORIDE
     Indication: Fuchs^ syndrome
     Route: 047
     Dates: start: 20221101

REACTIONS (3)
  - Cataract operation [Unknown]
  - Erythema of eyelid [Unknown]
  - Eyelid irritation [Unknown]
